FAERS Safety Report 23486472 (Version 1)
Quarter: 2024Q1

REPORT INFORMATION
  Report Type: Report from Study
  Country: PE (occurrence: PE)
  Receive Date: 20240206
  Receipt Date: 20240206
  Transmission Date: 20240410
  Serious: Yes (Other)
  Sender: FDA-Public Use
  Company Number: PE-BAYER-2024A019149

PATIENT
  Age: 86 Year
  Sex: Male

DRUGS (1)
  1. EYLEA [Suspect]
     Active Substance: AFLIBERCEPT
     Indication: Age-related macular degeneration
     Dosage: UNK, VIAL CONTAINING 40 MG/ML AFLIBERCEPT, 2 MG, SOLUTION FOR INJECTION
     Dates: start: 20230222

REACTIONS (1)
  - Macular oedema [Unknown]

NARRATIVE: CASE EVENT DATE: 20240101
